FAERS Safety Report 18507251 (Version 4)
Quarter: 2020Q4

REPORT INFORMATION
  Report Type: Report from Study
  Country: GB (occurrence: GB)
  Receive Date: 20201116
  Receipt Date: 20201231
  Transmission Date: 20210114
  Serious: Yes (Hospitalization, Other)
  Sender: FDA-Public Use
  Company Number: GB-UCBSA-2020045135

PATIENT
  Age: 61 Year
  Sex: Female

DRUGS (4)
  1. CERTOLIZUMAB PEGOL PSA AUTOCLICKS [Suspect]
     Active Substance: CERTOLIZUMAB PEGOL
     Indication: PSORIATIC ARTHROPATHY
     Dosage: 400 MILLIGRAM, EV 2 WEEKS(QOW)
     Route: 058
     Dates: start: 20201022, end: 2020
  2. EPIPEN [Concomitant]
     Active Substance: EPINEPHRINE
     Indication: ANAPHYLACTIC REACTION
     Dosage: UNK
  3. SECUKINUMAB. [Concomitant]
     Active Substance: SECUKINUMAB
     Indication: ANAPHYLACTIC REACTION
  4. LORATADINE. [Concomitant]
     Active Substance: LORATADINE
     Indication: ANAPHYLACTIC REACTION

REACTIONS (4)
  - Anaphylactic reaction [Unknown]
  - Lymphadenopathy [Unknown]
  - SARS-CoV-2 test negative [Unknown]
  - Lower respiratory tract infection [Unknown]

NARRATIVE: CASE EVENT DATE: 2020
